FAERS Safety Report 5823117-3 (Version None)
Quarter: 2008Q3

REPORT INFORMATION
  Report Type: 
  Country: None (occurrence: None)
  Receive Date: 20080724
  Receipt Date: 20080724
  Transmission Date: 20090109
  Serious: Yes (Hospitalization)
  Sender: FDA-Public Use
  Company Number: None

PATIENT
  Age: 53 Year
  Sex: Male

DRUGS (6)
  1. LISINOPRIL [Suspect]
     Indication: HYPERTENSION
     Dosage: ORAL;10.0 MILLIGRAM
     Dates: start: 20020801, end: 20080606
  2. HYDROCHLOROTHIAZIDE [Concomitant]
  3. LORATADINE [Concomitant]
  4. ASPIRIN [Concomitant]
  5. M.V.I. [Concomitant]
  6. ASCORBIC ACID [Concomitant]

REACTIONS (2)
  - LIP SWELLING [None]
  - SIMILAR REACTION ON PREVIOUS EXPOSURE TO DRUG [None]
